FAERS Safety Report 13704612 (Version 1)
Quarter: 2017Q2

REPORT INFORMATION
  Report Type: Spontaneous
  Country: US (occurrence: US)
  Receive Date: 20170629
  Receipt Date: 20170629
  Transmission Date: 20170830
  Serious: Yes (Other)
  Sender: FDA-Public Use
  Company Number: None

PATIENT
  Age: 9 Year
  Sex: Male
  Weight: 42.1 kg

DRUGS (1)
  1. LUPRON DEPOT-PED [Suspect]
     Active Substance: LEUPROLIDE ACETATE
     Indication: PRECOCIOUS PUBERTY
     Dosage: ?          OTHER DOSE:MG;OTHER FREQUENCY:EVERY 3 MONTHS;?
     Route: 030
     Dates: start: 20160721, end: 20170418

REACTIONS (4)
  - Muscle necrosis [None]
  - Muscle abscess [None]
  - Inflammation [None]
  - Abscess drainage [None]

NARRATIVE: CASE EVENT DATE: 20170427
